FAERS Safety Report 8085916-X (Version None)
Quarter: 2012Q1

REPORT INFORMATION
  Report Type: 
  Country: None (occurrence: None)
  Receive Date: 20120128
  Receipt Date: 20110504
  Transmission Date: 20120608
  Serious: No
  Sender: FDA-Public Use
  Company Number: US-ABBOTT-11P-163-0723522-00

PATIENT
  Age: 30 Year
  Sex: Male

DRUGS (11)
  1. CLOBEX [Concomitant]
     Indication: PRODUCT USED FOR UNKNOWN INDICATION
     Dosage: SPRAY, .0. 05 %  TO SKIN AS NEEDED
     Dates: start: 20100101
  2. ADVAIR DISKUS 100/50 [Concomitant]
     Indication: PRODUCT USED FOR UNKNOWN INDICATION
     Dosage: 100/50 MG TWICE A DAY
     Dates: start: 20030101
  3. ADDERALL XR 10 [Concomitant]
     Indication: OBSESSIVE-COMPULSIVE DISORDER
  4. ADDERALL XR 10 [Concomitant]
     Indication: ATTENTION DEFICIT/HYPERACTIVITY DISORDER
     Dosage: 25 MG ONCE DAILY IN AM
  5. SINGULAIR [Concomitant]
     Indication: ASTHMA
     Dosage: IN THE EVENING EVERY PM
     Route: 048
     Dates: start: 20080101
  6. CUTIVATE [Concomitant]
     Indication: PRODUCT USED FOR UNKNOWN INDICATION
     Dosage: AS NEEDED
     Dates: start: 20080101
  7. SINGULAIR [Concomitant]
     Indication: HYPERSENSITIVITY
  8. RHINOCORT [Concomitant]
     Indication: PRODUCT USED FOR UNKNOWN INDICATION
     Dosage: 2 SPRAYS IN EACH NOSTRIL
     Dates: start: 20080101
  9. PROAIR HFA [Concomitant]
     Indication: PRODUCT USED FOR UNKNOWN INDICATION
     Dosage: 200 METER DOSEAS NEEDED
     Dates: start: 20080101
  10. HUMIRA [Suspect]
     Indication: PSORIASIS
     Dates: start: 20090401
  11. OLUX [Concomitant]
     Indication: PRODUCT USED FOR UNKNOWN INDICATION
     Dosage: FOAM 100 GRAMS ON HIS SCALP
     Dates: start: 20100101

REACTIONS (5)
  - BLOOD URIC ACID INCREASED [None]
  - STRESS [None]
  - INJECTION SITE SWELLING [None]
  - INJECTION SITE PAIN [None]
  - INJECTION SITE ERYTHEMA [None]
